FAERS Safety Report 8193857-2 (Version None)
Quarter: 2012Q1

REPORT INFORMATION
  Report Type: 
  Country: None (occurrence: None)
  Receive Date: 20120308
  Receipt Date: 20120224
  Transmission Date: 20120608
  Serious: Yes (Death, Hospitalization)
  Sender: FDA-Public Use
  Company Number: CA-ELI_LILLY_AND_COMPANY-CA201201007074

PATIENT
  Sex: Female
  Weight: 44.3 kg

DRUGS (16)
  1. SENNA [Concomitant]
     Dosage: UNK
  2. OXYCONTIN [Concomitant]
     Dosage: 40 MG, BID
     Dates: start: 20111228
  3. METOCLOP [Concomitant]
     Dosage: 10 MG, PRN
  4. GEMCITABINE HYDROCHLORIDE [Suspect]
     Dosage: 1310 MG, UNK
     Route: 042
     Dates: start: 20111222, end: 20120118
  5. DECADRON [Concomitant]
     Dosage: 4 MG, BID
  6. ALBUTEROL [Concomitant]
     Dosage: 2 DF, PRN
  7. OXYCONTIN [Concomitant]
     Dosage: 5 MG, PRN
  8. ONDANSETRON [Concomitant]
     Dosage: 8 MG, PRN
     Dates: start: 20111222
  9. DOCUSATE [Concomitant]
  10. CISPLATIN [Suspect]
     Dosage: 77 MG, UNK
     Route: 042
     Dates: start: 20111222, end: 20120118
  11. ATIVAN [Concomitant]
     Dosage: 1 MG, EACH EVENING
  12. SYMBICORT [Concomitant]
     Dosage: 2 DF, BID
     Route: 055
  13. LANSOPRAZOLE [Concomitant]
     Dosage: 50 MG, UNK
  14. ZOFRAN [Concomitant]
     Dosage: 8 MG, PRN
  15. LACTULOSE [Concomitant]
  16. DEXAMETHASONE [Concomitant]
     Dosage: 4 MG, BID

REACTIONS (1)
  - ABDOMINAL PAIN [None]
